FAERS Safety Report 21131795 (Version 1)
Quarter: 2022Q3

REPORT INFORMATION
  Report Type: Spontaneous
  Country: BR (occurrence: BR)
  Receive Date: 20220726
  Receipt Date: 20220726
  Transmission Date: 20221026
  Serious: Yes (Life-Threatening, Other)
  Sender: FDA-Public Use
  Company Number: BR-PFIZER INC-PV202200029736

PATIENT
  Age: 70 Year
  Sex: Male

DRUGS (5)
  1. VYNDAQEL [Suspect]
     Active Substance: TAFAMIDIS MEGLUMINE
     Indication: Hereditary neuropathic amyloidosis
     Dosage: UNK
     Dates: start: 202203
  2. XARELTO [Concomitant]
     Active Substance: RIVAROXABAN
  3. ATENOLOL [Concomitant]
     Active Substance: ATENOLOL
  4. LASIX [Concomitant]
     Active Substance: FUROSEMIDE
  5. DAFLON 1000 [Concomitant]
     Dosage: 1000 MG

REACTIONS (7)
  - Amyloidosis [Unknown]
  - Hypotension [Unknown]
  - Nervousness [Unknown]
  - Fear of death [Unknown]
  - Speech disorder [Unknown]
  - Peripheral swelling [Recovering/Resolving]
  - Off label use [Unknown]

NARRATIVE: CASE EVENT DATE: 20220301
